FAERS Safety Report 24259697 (Version 2)
Quarter: 2024Q4

REPORT INFORMATION
  Report Type: Report from Study
  Country: US (occurrence: US)
  Receive Date: 20240828
  Receipt Date: 20241216
  Transmission Date: 20250114
  Serious: Yes (Other)
  Sender: ABBVIE
  Company Number: US-ABBVIE-5892330

PATIENT
  Age: 35 Year
  Sex: Female

DRUGS (2)
  1. RINVOQ [Suspect]
     Active Substance: UPADACITINIB
     Indication: Colitis ulcerative
     Route: 048
     Dates: start: 20230303, end: 20240704
  2. RINVOQ [Suspect]
     Active Substance: UPADACITINIB
     Indication: Colitis ulcerative
     Dosage: LAST ADMIN: 2024
     Route: 048
     Dates: start: 20240315

REACTIONS (6)
  - Carpal tunnel syndrome [Unknown]
  - Urticaria [Unknown]
  - Carpal tunnel syndrome [Not Recovered/Not Resolved]
  - Urticaria [Recovered/Resolved]
  - Rash macular [Not Recovered/Not Resolved]
  - Allergy to plants [Unknown]

NARRATIVE: CASE EVENT DATE: 20240101
